FAERS Safety Report 7367605-X (Version None)
Quarter: 2011Q1

REPORT INFORMATION
  Report Type: 
  Country: None (occurrence: None)
  Receive Date: 20110322
  Receipt Date: 20110316
  Transmission Date: 20110831
  Serious: Yes (Other)
  Sender: FDA-Public Use
  Company Number: ES-GILEAD-2011-0036344

PATIENT
  Sex: Female
  Weight: 46.5 kg

DRUGS (3)
  1. ATRIPLA [Suspect]
     Indication: HIV INFECTION
     Route: 048
     Dates: start: 20110120, end: 20110204
  2. ESCITALOPRAM [Concomitant]
     Indication: ADJUSTMENT DISORDER
     Route: 048
     Dates: start: 20101103
  3. MIRTAZAPINA [Concomitant]
     Indication: ADJUSTMENT DISORDER
     Route: 048
     Dates: start: 20101103

REACTIONS (4)
  - HYPERSENSITIVITY [None]
  - PYREXIA [None]
  - GENERALISED ERYTHEMA [None]
  - MUCOSAL INFLAMMATION [None]
